FAERS Safety Report 4786046-2 (Version None)
Quarter: 2005Q3

REPORT INFORMATION
  Report Type: 
  Country: None (occurrence: None)
  Receive Date: 20050930
  Receipt Date: 20050920
  Transmission Date: 20060218
  Serious: Yes (Other)
  Sender: FDA-Public Use
  Company Number: 2005129996

PATIENT
  Age: 54 Year
  Sex: Male

DRUGS (3)
  1. NICOTINE [Suspect]
     Indication: NICOTINE DEPENDENCE
     Dosage: 15 MG, TRANSDERMAL
     Route: 062
  2. VENLAFAXINE HCL [Concomitant]
  3. TERBINAFINE HCL [Concomitant]

REACTIONS (1)
  - SKIN REACTION [None]
